FAERS Safety Report 23180473 (Version 2)
Quarter: 2024Q1

REPORT INFORMATION
  Report Type: Spontaneous
  Country: JP (occurrence: JP)
  Receive Date: 20231114
  Receipt Date: 20240212
  Transmission Date: 20240410
  Serious: Yes (Other)
  Sender: FDA-Public Use
  Company Number: JP-ONO-2023JP027708

PATIENT

DRUGS (2)
  1. OPDIVO [Suspect]
     Active Substance: NIVOLUMAB
     Indication: Gastric cancer
     Dosage: UNK
     Route: 041
     Dates: end: 202309
  2. LINAGLIPTIN [Concomitant]
     Active Substance: LINAGLIPTIN
     Indication: Product used for unknown indication
     Dosage: UNK
     Dates: end: 202309

REACTIONS (4)
  - Pemphigoid [Not Recovered/Not Resolved]
  - Blood thyroid stimulating hormone increased [Unknown]
  - Tri-iodothyronine decreased [Unknown]
  - Thyroxine decreased [Unknown]
